FAERS Safety Report 12332733 (Version 1)
Quarter: 2016Q2

REPORT INFORMATION
  Report Type: Spontaneous
  Country: FR (occurrence: FR)
  Receive Date: 20160504
  Receipt Date: 20160504
  Transmission Date: 20160815
  Serious: Yes (Hospitalization, Other)
  Sender: FDA-Public Use
  Company Number: FR-PFIZER INC-2016237639

PATIENT
  Age: 58 Year
  Sex: Male

DRUGS (7)
  1. CISPLATIN. [Suspect]
     Active Substance: CISPLATIN
     Indication: PANCREATIC CARCINOMA METASTATIC
     Dosage: 183 MG DAILY FOR 3 DAYS EVERY 3 WEEKS, CYCLIC (1ST COURSE)
     Route: 041
     Dates: start: 20160307, end: 20160309
  2. EMEND [Suspect]
     Active Substance: APREPITANT
     Dosage: 1 TABLET ONCE DAILY
     Route: 048
     Dates: start: 20160307, end: 20160309
  3. ZOPHREN /00955302/ [Suspect]
     Active Substance: ONDANSETRON
     Dosage: 1 TABLET TWICE DAILY
     Route: 048
     Dates: start: 20160307, end: 20160311
  4. ORACILLINE /00001805/ [Concomitant]
     Active Substance: PENICILLIN V BENZATHINE
     Indication: PANCREATICOSPLENECTOMY
     Dosage: 1000000 IU, SCORED TABLET
     Route: 048
  5. SOLU-MEDROL [Suspect]
     Active Substance: METHYLPREDNISOLONE SODIUM SUCCINATE
     Dosage: 80 MG, 1X/DAY
     Route: 042
     Dates: start: 20160307, end: 20160309
  6. ETOPOSIDE. [Suspect]
     Active Substance: ETOPOSIDE
     Indication: PANCREATIC CARCINOMA METASTATIC
     Dosage: 183 MG DAILY FOR 3 DAYS EVERY 3 WEEKS, CYCLIC (1ST COURSE)
     Route: 041
     Dates: start: 20160307, end: 20160309
  7. SOLUPRED /00016217/ [Suspect]
     Active Substance: PREDNISOLONE
     Dosage: 40 MG, 1X/DAY
     Route: 048
     Dates: start: 20160308, end: 20160309

REACTIONS (11)
  - Abdominal pain upper [Recovered/Resolved]
  - Vomiting [Recovered/Resolved]
  - Oesophageal disorder [Unknown]
  - Dyspepsia [Unknown]
  - Asthenia [Unknown]
  - Gastrointestinal oedema [Unknown]
  - Erosive duodenitis [Recovered/Resolved]
  - Dizziness [Unknown]
  - Pulmonary embolism [Unknown]
  - Decreased appetite [Unknown]
  - Nausea [Recovered/Resolved]

NARRATIVE: CASE EVENT DATE: 20160308
